FAERS Safety Report 6426239-1 (Version None)
Quarter: 2009Q4

REPORT INFORMATION
  Report Type: 
  Country: None (occurrence: None)
  Receive Date: 20091103
  Receipt Date: 20091103
  Transmission Date: 20100525
  Serious: Yes (Hospitalization, Disabling)
  Sender: FDA-Public Use
  Company Number: None

PATIENT
  Age: 49 Year
  Sex: Female
  Weight: 79.3795 kg

DRUGS (1)
  1. EMEND [Suspect]
     Indication: NAUSEA
     Dosage: 115MG IV DRIP
     Route: 041
     Dates: start: 20091016, end: 20091016

REACTIONS (6)
  - BLOOD PRESSURE INCREASED [None]
  - CHEST DISCOMFORT [None]
  - FLUSHING [None]
  - NAUSEA [None]
  - OXYGEN SATURATION DECREASED [None]
  - SKIN DISCOLOURATION [None]
